FAERS Safety Report 8162520-6 (Version None)
Quarter: 2012Q1

REPORT INFORMATION
  Report Type: 
  Country: None (occurrence: None)
  Receive Date: 20120224
  Receipt Date: 20120220
  Transmission Date: 20120608
  Serious: Yes (Other)
  Sender: FDA-Public Use
  Company Number: US-PFIZER INC-2012044895

PATIENT
  Sex: Female
  Weight: 97.959 kg

DRUGS (3)
  1. CETIRIZINE [Concomitant]
     Indication: HYPERSENSITIVITY
     Dosage: 10 MG, 1X/DAY
  2. CELEBREX [Suspect]
     Indication: PAIN IN EXTREMITY
     Dosage: 200 MG, 1X/DAY
     Route: 048
  3. VENLAFAXINE [Concomitant]
     Indication: IRRITABLE BOWEL SYNDROME
     Dosage: 225 MG, 1X/DAY

REACTIONS (5)
  - DEPRESSION [None]
  - KNEE OPERATION [None]
  - ANXIETY [None]
  - AMNESIA [None]
  - HYPERTENSION [None]
